FAERS Safety Report 4463034-7 (Version None)
Quarter: 2004Q3

REPORT INFORMATION
  Report Type: 
  Country: None (occurrence: None)
  Receive Date: 20040928
  Receipt Date: 20040922
  Transmission Date: 20050211
  Serious: Yes (Hospitalization)
  Sender: FDA-Public Use
  Company Number: NLWYE065624SEP04

PATIENT
  Sex: Female

DRUGS (1)
  1. SIROLIMUS (SIROLIMUS, UNSPEC, 0) [Suspect]

REACTIONS (3)
  - IMMUNOSUPPRESSANT DRUG LEVEL INCREASED [None]
  - MALAISE [None]
  - PNEUMONIA [None]
